FAERS Safety Report 6295953-3 (Version None)
Quarter: 2009Q3

REPORT INFORMATION
  Report Type: 
  Country: None (occurrence: None)
  Receive Date: 20090803
  Receipt Date: 20090803
  Transmission Date: 20100115
  Serious: Yes (Life-Threatening)
  Sender: FDA-Public Use
  Company Number: None

PATIENT
  Age: 69 Year
  Sex: Female
  Weight: 68.0396 kg

DRUGS (1)
  1. NEXIUM [Suspect]
     Indication: BARRETT'S OESOPHAGUS
     Dosage: 40MG DAILY PO
     Route: 048
     Dates: start: 20090101, end: 20090720

REACTIONS (4)
  - DYSPHAGIA [None]
  - EATING DISORDER [None]
  - GLOSSODYNIA [None]
  - THROAT TIGHTNESS [None]
